FAERS Safety Report 6426652-2 (Version None)
Quarter: 2009Q4

REPORT INFORMATION
  Report Type: 
  Country: None (occurrence: None)
  Receive Date: 20091104
  Receipt Date: 20091102
  Transmission Date: 20100525
  Serious: Yes (Other)
  Sender: FDA-Public Use
  Company Number: GR-ROXANE LABORATORIES, INC.-2009-RO-01130RO

PATIENT
  Age: 37 Year
  Sex: Female

DRUGS (1)
  1. CLARITHROMYCIN [Suspect]
     Indication: ROSACEA
     Dosage: 1000 MG

REACTIONS (1)
  - HOIGNE'S SYNDROME [None]
